FAERS Safety Report 24157625 (Version 1)
Quarter: 2024Q3

REPORT INFORMATION
  Report Type: Spontaneous
  Country: DE (occurrence: DE)
  Receive Date: 20240731
  Receipt Date: 20240731
  Transmission Date: 20241016
  Serious: Yes (Hospitalization, Other)
  Sender: GLAND PHARMA
  Company Number: DE-GLANDPHARMA-DE-2024GLNLIT00569

PATIENT
  Age: 55 Year
  Sex: Female

DRUGS (5)
  1. METRONIDAZOLE [Suspect]
     Active Substance: METRONIDAZOLE
     Indication: Clostridium difficile infection
     Route: 065
  2. URAPIDIL [Concomitant]
     Active Substance: URAPIDIL
     Indication: Hypertension
     Route: 065
  3. NIMODIPINE [Concomitant]
     Active Substance: NIMODIPINE
     Indication: Hypertension
     Route: 065
  4. METAMIZOLE [Concomitant]
     Active Substance: METAMIZOLE
     Indication: Headache
     Route: 065
  5. FENTANYL [Concomitant]
     Active Substance: FENTANYL\FENTANYL CITRATE
     Indication: Headache
     Route: 065

REACTIONS (1)
  - Posterior reversible encephalopathy syndrome [Recovered/Resolved]
